FAERS Safety Report 24344528 (Version 2)
Quarter: 2024Q3

REPORT INFORMATION
  Report Type: Report from Study
  Country: GB (occurrence: GB)
  Receive Date: 20240920
  Receipt Date: 20240925
  Transmission Date: 20241017
  Serious: Yes (Other)
  Sender: SAMSUNG BIOEPIS
  Company Number: GB-SAMSUNG BIOEPIS-SB-2024-28049

PATIENT
  Age: 78 Year
  Sex: Female

DRUGS (1)
  1. IMRALDI [Suspect]
     Active Substance: ADALIMUMAB
     Indication: Psoriatic arthropathy
     Dosage: 40 MG/0.8 ML;
     Route: 058
     Dates: start: 20231012

REACTIONS (2)
  - Deafness [Not Recovered/Not Resolved]
  - Blood pressure abnormal [Unknown]
